FAERS Safety Report 11213471 (Version 1)
Quarter: 2015Q2

REPORT INFORMATION
  Report Type: Spontaneous
  Country: IN (occurrence: IN)
  Receive Date: 20150623
  Receipt Date: 20150623
  Transmission Date: 20150821
  Serious: Yes (Other)
  Sender: FDA-Public Use
  Company Number: CHPA2015IN007306

PATIENT
  Age: 27 Year
  Sex: Male

DRUGS (1)
  1. PARACETAMOL [Suspect]
     Active Substance: ACETAMINOPHEN
     Indication: PYREXIA
     Dosage: 500 MG, BID
     Route: 065

REACTIONS (8)
  - Pruritus [Recovering/Resolving]
  - Lacrimation increased [Recovering/Resolving]
  - Erythema [Recovering/Resolving]
  - Eye swelling [Recovering/Resolving]
  - Drug reaction with eosinophilia and systemic symptoms [Recovering/Resolving]
  - Asthenia [Recovering/Resolving]
  - Arthralgia [Recovering/Resolving]
  - Lymphadenopathy [Recovering/Resolving]
